FAERS Safety Report 9602247 (Version 4)
Quarter: 2013Q4

REPORT INFORMATION
  Report Type: Spontaneous
  Country: JP (occurrence: JP)
  Receive Date: 20131007
  Receipt Date: 20131204
  Transmission Date: 20140711
  Serious: Yes (Death, Hospitalization, Other)
  Sender: FDA-Public Use
  Company Number: JP-AMGEN-JPNSP2013069867

PATIENT
  Age: 64 Year
  Sex: Female

DRUGS (11)
  1. ENBREL [Suspect]
     Indication: RHEUMATOID ARTHRITIS
     Dosage: 25 MG, WEEKLY
     Route: 058
     Dates: start: 200908, end: 200911
  2. ENBREL [Suspect]
     Dosage: 25 MG, WEEKLY
     Route: 058
     Dates: start: 20100817, end: 20130709
  3. RHEUMATREX /00113802/ [Suspect]
     Indication: RHEUMATOID ARTHRITIS
     Dosage: 10 MG, WEEKLY
     Route: 048
     Dates: start: 20100817
  4. PREDONINE                          /00016203/ [Concomitant]
     Indication: RHEUMATOID ARTHRITIS
     Dosage: 5 MG, 1X/DAY
     Route: 048
  5. ACTOS [Concomitant]
     Indication: DIABETES MELLITUS
     Dosage: 15 MG, 1X/DAY
     Route: 048
  6. ONE-ALPHA [Concomitant]
     Indication: RHEUMATOID ARTHRITIS
     Dosage: 0.5 MG, 1X/DAY
     Route: 048
  7. LOXONIN [Concomitant]
     Indication: RHEUMATOID ARTHRITIS
     Dosage: 60 MG, 2X/DAY
     Route: 048
  8. MUCOSTA [Concomitant]
     Indication: RHEUMATOID ARTHRITIS
     Dosage: 100 MG, 2X/DAY
     Route: 048
  9. LIPITOR [Concomitant]
     Indication: DYSLIPIDAEMIA
     Dosage: 5 MG, 1X/DAY
     Route: 048
  10. TAKEPRON [Concomitant]
     Indication: RHEUMATOID ARTHRITIS
     Dosage: 15 MG, 1X/DAY
     Route: 048
  11. BENET [Concomitant]
     Indication: RHEUMATOID ARTHRITIS
     Dosage: 17.5 MG, 1X/DAY
     Route: 048

REACTIONS (3)
  - Gastrointestinal necrosis [Fatal]
  - Intestinal obstruction [Fatal]
  - Gastrointestinal perforation [Recovered/Resolved]
